FAERS Safety Report 5767220-5 (Version None)
Quarter: 2008Q2

REPORT INFORMATION
  Report Type: 
  Country: None (occurrence: None)
  Receive Date: 20080606
  Receipt Date: 20080522
  Transmission Date: 20081010
  Serious: Yes (Hospitalization)
  Sender: FDA-Public Use
  Company Number: 08P-127-0453456-00

PATIENT
  Age: 3 Month
  Sex: Male
  Weight: 3.2 kg

DRUGS (1)
  1. SYNAGIS [Suspect]
     Indication: ANTIVIRAL PROPHYLAXIS
     Dosage: 15 MG/KG, MONTHLY INTRAMUSCULAR
     Route: 030
     Dates: start: 20080425, end: 20080425

REACTIONS (8)
  - ATELECTASIS [None]
  - BRONCHOPULMONARY DYSPLASIA [None]
  - COUGH [None]
  - CYANOSIS [None]
  - PYREXIA [None]
  - RESPIRATORY DISTRESS [None]
  - RESPIRATORY TRACT INFECTION VIRAL [None]
  - RHINORRHOEA [None]
